FAERS Safety Report 22923287 (Version 4)
Quarter: 2023Q4

REPORT INFORMATION
  Report Type: Spontaneous
  Country: JP (occurrence: JP)
  Receive Date: 20230908
  Receipt Date: 20231221
  Transmission Date: 20240110
  Serious: Yes (Life-Threatening, Hospitalization, Other)
  Sender: FDA-Public Use
  Company Number: JP-ONO-2023JP022399

PATIENT
  Age: 73 Year
  Sex: Male

DRUGS (3)
  1. YERVOY [Suspect]
     Active Substance: IPILIMUMAB
     Indication: Metastatic renal cell carcinoma
     Route: 041
  2. OPDIVO [Suspect]
     Active Substance: NIVOLUMAB
     Indication: Metastatic renal cell carcinoma
     Route: 041
  3. OPDIVO [Suspect]
     Active Substance: NIVOLUMAB
     Route: 041

REACTIONS (4)
  - Fulminant type 1 diabetes mellitus [Recovered/Resolved]
  - Hypothyroidism [Recovered/Resolved]
  - Rash [Recovered/Resolved]
  - Diabetic ketoacidosis [Unknown]
